FAERS Safety Report 14236222 (Version 6)
Quarter: 2019Q2

REPORT INFORMATION
  Report Type: Report from Study
  Country: JP (occurrence: JP)
  Receive Date: 20171129
  Receipt Date: 20190613
  Transmission Date: 20190711
  Serious: Yes (Death, Hospitalization)
  Sender: FDA-Public Use
  Company Number: JP-PFIZER INC-2017512949

PATIENT
  Age: 55 Year
  Sex: Male
  Weight: 68 kg

DRUGS (26)
  1. PREDONINE [Suspect]
     Active Substance: PREDNISOLONE
     Dosage: 10 MG, DAILY
     Dates: start: 20150515, end: 20151213
  2. PREDONINE [Suspect]
     Active Substance: PREDNISOLONE
     Dosage: 85 MG, DAILY
     Route: 048
     Dates: start: 20160613, end: 20160713
  3. PREDONINE [Suspect]
     Active Substance: PREDNISOLONE
     Dosage: 60 MG, DAILY
     Dates: start: 20141111, end: 20141217
  4. PREDONINE [Suspect]
     Active Substance: PREDNISOLONE
     Dosage: 40 MG, DAILY
     Dates: start: 20150126, end: 20150219
  5. PREDONINE [Suspect]
     Active Substance: PREDNISOLONE
     Dosage: 50 MG, DAILY
     Dates: start: 20141218, end: 20150125
  6. PREDONINE [Suspect]
     Active Substance: PREDNISOLONE
     Dosage: 20 MG, DAILY
     Dates: start: 20150320, end: 20150402
  7. PREDONINE [Suspect]
     Active Substance: PREDNISOLONE
     Dosage: 60 MG, DAILY
     Dates: start: 20160530, end: 20160612
  8. PREDONINE [Suspect]
     Active Substance: PREDNISOLONE
     Dosage: 15 MG, DAILY
     Dates: start: 20150417, end: 20150430
  9. REMICADE [Concomitant]
     Active Substance: INFLIXIMAB
     Dosage: UNK
     Dates: start: 20141015, end: 20141114
  10. XELJANZ [Suspect]
     Active Substance: TOFACITINIB CITRATE
     Dosage: 5 MG, 1X/DAY
     Dates: start: 20150105, end: 20150125
  11. PREDONINE [Suspect]
     Active Substance: PREDNISOLONE
     Dosage: 17.5 MG, DAILY
     Dates: start: 20150403, end: 20150416
  12. PREDONINE [Suspect]
     Active Substance: PREDNISOLONE
     Dosage: 8 MG, DAILY
     Dates: start: 20151214, end: 20160410
  13. PREDONINE [Suspect]
     Active Substance: PREDNISOLONE
     Dosage: 20 MG, DAILY
     Dates: start: 20160411, end: 20160508
  14. PREDONINE [Suspect]
     Active Substance: PREDNISOLONE
     Dosage: 30 MG, DAILY
     Dates: start: 20160509, end: 20160529
  15. ATORVASTATIN [Concomitant]
     Active Substance: ATORVASTATIN
     Indication: LIPIDS ABNORMAL
     Route: 048
  16. PREDONINE [Suspect]
     Active Substance: PREDNISOLONE
     Dosage: 30 MG, DAILY
     Dates: start: 20150220, end: 20150305
  17. PREDONINE [Suspect]
     Active Substance: PREDNISOLONE
     Dosage: 25 MG, DAILY
     Dates: start: 20150306, end: 20150319
  18. DAIPHEN [Concomitant]
     Active Substance: SULFAMETHOXAZOLE\TRIMETHOPRIM
     Indication: PROPHYLAXIS
     Dosage: UNK
     Dates: start: 20140929
  19. SOLU-MEDROL [Concomitant]
     Active Substance: METHYLPREDNISOLONE SODIUM SUCCINATE
     Indication: DERMATOMYOSITIS
     Dosage: UNK
     Dates: start: 20160610
  20. XELJANZ [Suspect]
     Active Substance: TOFACITINIB CITRATE
     Indication: DERMATOMYOSITIS
     Dosage: 5 MG, 2X/DAY
     Dates: start: 20141127, end: 20150104
  21. PROGRAF [Concomitant]
     Active Substance: TACROLIMUS\TACROLIMUS ANHYDROUS
     Dosage: UNK
     Dates: start: 20140912, end: 20141229
  22. PARIET [Concomitant]
     Active Substance: RABEPRAZOLE SODIUM
     Indication: PROPHYLAXIS
     Route: 048
  23. XELJANZ [Suspect]
     Active Substance: TOFACITINIB CITRATE
     Dosage: 5 MG, 2X/DAY
     Dates: start: 20150126
  24. PREDONINE [Suspect]
     Active Substance: PREDNISOLONE
     Indication: RHEUMATOID ARTHRITIS
     Dosage: 70 MG, DAILY
     Dates: start: 20140912, end: 20141110
  25. PREDONINE [Suspect]
     Active Substance: PREDNISOLONE
     Dosage: 12.5 MG, DAILY
     Dates: start: 20150501, end: 20150514
  26. AMLODIPINE [Concomitant]
     Active Substance: AMLODIPINE BESYLATE
     Indication: HYPERTENSION
     Route: 048

REACTIONS (6)
  - Interstitial lung disease [Fatal]
  - Pneumonia [Fatal]
  - Spinal compression fracture [Recovering/Resolving]
  - Condition aggravated [Fatal]
  - Adenoviral haemorrhagic cystitis [Recovered/Resolved]
  - Pulmonary embolism [Recovered/Resolved]

NARRATIVE: CASE EVENT DATE: 20141222
